FAERS Safety Report 22150446 (Version 1)
Quarter: 2023Q1

REPORT INFORMATION
  Report Type: Spontaneous
  Country: US (occurrence: US)
  Receive Date: 20230329
  Receipt Date: 20230329
  Transmission Date: 20230418
  Serious: Yes (Other)
  Sender: FDA-Public Use
  Company Number: US-BEH-2023156735

PATIENT
  Sex: Female

DRUGS (11)
  1. PRIVIGEN [Suspect]
     Active Substance: HUMAN IMMUNOGLOBULIN G
     Indication: Immunodeficiency common variable
     Dosage: 20 GRAM, QMT (EVERY 28 DAYS)
     Route: 042
     Dates: start: 20230222
  2. ATENOLOL [Concomitant]
     Active Substance: ATENOLOL
  3. HYDROCODONE BITARTRATE AND ACETAMINOPHEN [Concomitant]
     Active Substance: ACETAMINOPHEN\HYDROCODONE BITARTRATE
  4. HYDROXYUREA [Concomitant]
     Active Substance: HYDROXYUREA
  5. JAKAFI [Concomitant]
     Active Substance: RUXOLITINIB
  6. LORAZEPAM [Concomitant]
     Active Substance: LORAZEPAM
  7. VITAMINS NOS [Concomitant]
     Active Substance: VITAMINS
  8. PANTOPRAZOLE [Concomitant]
     Active Substance: PANTOPRAZOLE
  9. SYNTHROID [Concomitant]
     Active Substance: LEVOTHYROXINE SODIUM
  10. VITAMIN C [Concomitant]
     Active Substance: ASCORBIC ACID
  11. VITAMIN D3 [Concomitant]
     Active Substance: CHOLECALCIFEROL

REACTIONS (4)
  - Haemorrhage [Unknown]
  - Tooth extraction [Unknown]
  - Tooth socket haemorrhage [Unknown]
  - Ligament rupture [Unknown]
